FAERS Safety Report 25526248 (Version 1)
Quarter: 2025Q3

REPORT INFORMATION
  Report Type: Report from Study
  Country: US (occurrence: US)
  Receive Date: 20250707
  Receipt Date: 20250707
  Transmission Date: 20251021
  Serious: Yes (Death)
  Sender: PFIZER
  Company Number: US-PFIZER INC-202500038231

PATIENT
  Age: 89 Year
  Sex: Female

DRUGS (6)
  1. VYNDAMAX [Suspect]
     Active Substance: TAFAMIDIS
     Dosage: 61 MG, 1 CAPSULE EVERY DAY
     Route: 048
     Dates: start: 20250212, end: 20250626
  2. ELIQUIS [Concomitant]
     Active Substance: APIXABAN
  3. METOPROLOLTARTRAT [Concomitant]
  4. FUROSEMIDE SODIUM [Concomitant]
     Active Substance: FUROSEMIDE SODIUM
  5. ANASTROZOLE [Concomitant]
     Active Substance: ANASTROZOLE
  6. VITAMINS NOS [Concomitant]
     Active Substance: VITAMINS

REACTIONS (1)
  - Death [Fatal]

NARRATIVE: CASE EVENT DATE: 20250626
